FAERS Safety Report 7557025-7 (Version None)
Quarter: 2011Q2

REPORT INFORMATION
  Report Type: 
  Country: None (occurrence: None)
  Receive Date: 20110620
  Receipt Date: 20110614
  Transmission Date: 20111010
  Serious: Yes (Hospitalization)
  Sender: FDA-Public Use
  Company Number: PHHO2011AT02028

PATIENT
  Sex: Female
  Weight: 58 kg

DRUGS (16)
  1. ASPIRIN [Concomitant]
  2. PREDNISOLONE [Concomitant]
  3. CITALOPRAM [Concomitant]
  4. BALDRIAN [Concomitant]
  5. LORAZEPAM [Concomitant]
  6. EBRANTIL [Concomitant]
  7. LETROZOLE [Suspect]
     Indication: BREAST CANCER
     Dosage: 2.5 MG, QD
     Route: 048
     Dates: start: 20061229
  8. MAXI-KALZ [Concomitant]
  9. PASSEDAN [Concomitant]
  10. ATORVASTATIN [Concomitant]
     Indication: HYPERLIPIDAEMIA
  11. PANTOPRAZOLE SODIUM [Concomitant]
  12. FRAGMIN [Concomitant]
  13. TRAMADOL HYDROCHLORIDE [Concomitant]
  14. NICORETTE [Concomitant]
  15. MEXALEN [Concomitant]
  16. PANTOPRAZOLE [Concomitant]

REACTIONS (5)
  - CAROTID ARTERY STENOSIS [None]
  - EXTREMITY NECROSIS [None]
  - CONCOMITANT DISEASE PROGRESSION [None]
  - GANGRENE [None]
  - POLYARTHRITIS [None]
